FAERS Safety Report 18901865 (Version 7)
Quarter: 2021Q4

REPORT INFORMATION
  Report Type: Report from Study
  Country: GB (occurrence: GB)
  Receive Date: 20210216
  Receipt Date: 20211220
  Transmission Date: 20220303
  Serious: Yes (Life-Threatening, Hospitalization, Disabling, Other)
  Sender: FDA-Public Use
  Company Number: None

PATIENT
  Age: 42 Year
  Sex: Female
  Weight: 98 kg

DRUGS (111)
  1. TRASTUZUMAB [Suspect]
     Active Substance: TRASTUZUMAB
     Indication: Breast cancer metastatic
     Dosage: 798 MILLIGRAM, MONTHLY, 798MG LOADING
     Route: 042
     Dates: start: 20160718, end: 20160718
  2. TRASTUZUMAB [Suspect]
     Active Substance: TRASTUZUMAB
     Dosage: 588 MILLIGRAM, MONTHLY
     Route: 042
     Dates: start: 20160808, end: 20160808
  3. TRASTUZUMAB [Suspect]
     Active Substance: TRASTUZUMAB
     Dosage: 420 MILLIGRAM
     Route: 042
     Dates: start: 20160808, end: 20160830
  4. TRASTUZUMAB [Suspect]
     Active Substance: TRASTUZUMAB
     Dosage: 609 MILLIGRAM, MONTHLY
     Route: 042
     Dates: start: 20160830, end: 20160830
  5. TRASTUZUMAB [Suspect]
     Active Substance: TRASTUZUMAB
     Dosage: 420 MILLIGRAM
     Route: 042
     Dates: start: 20160808, end: 20160830
  6. TRASTUZUMAB [Suspect]
     Active Substance: TRASTUZUMAB
     Dosage: 798 MILLIGRAM, MONTHLY, 798MG LOADING
     Route: 042
     Dates: start: 20160718, end: 20160830
  7. TRASTUZUMAB [Suspect]
     Active Substance: TRASTUZUMAB
     Dosage: 798 MILLIGRAM, MONTHLY, LOADING
     Route: 042
  8. LETROZOLE [Suspect]
     Active Substance: LETROZOLE
     Indication: HER2 positive breast cancer
     Dosage: 2.5 MILLIGRAM, QD
     Route: 048
     Dates: start: 20170124
  9. PERTUZUMAB [Suspect]
     Active Substance: PERTUZUMAB
     Indication: HER2 positive breast cancer
     Dosage: 840 MILLIGRAM, LOADING DOSE
     Route: 042
     Dates: start: 20160718, end: 20160718
  10. PERTUZUMAB [Suspect]
     Active Substance: PERTUZUMAB
     Indication: Breast cancer metastatic
     Dosage: 420 MILLIGRAM, 840MG FIRST DOSE THEN 420MG
     Route: 042
     Dates: start: 20160808, end: 20160830
  11. PERTUZUMAB [Suspect]
     Active Substance: PERTUZUMAB
     Dosage: 420 MILLIGRAM, MONTHLY, 840MG FIRST DOSE THEN 420MG
     Route: 042
     Dates: start: 20160808, end: 20160830
  12. PERTUZUMAB [Suspect]
     Active Substance: PERTUZUMAB
     Dosage: 840 MILLIGRAM, LOADING DOSE
     Route: 042
     Dates: start: 20160718, end: 20160808
  13. PERTUZUMAB [Suspect]
     Active Substance: PERTUZUMAB
     Dosage: 840 MILLIGRAM, LOADING DOSE
     Route: 042
     Dates: start: 20160718, end: 20160830
  14. PERTUZUMAB [Suspect]
     Active Substance: PERTUZUMAB
     Dosage: 840 MILLIGRAM, MONTHLY (MONTHLY, 840MG FIRST DOSE THEN 420MG )
     Route: 042
  15. DOXYCYCLINE [Suspect]
     Active Substance: DOXYCYCLINE
     Indication: Breast cancer metastatic
     Dosage: 160 MILLIGRAM, MONTHLY
     Route: 042
     Dates: start: 20160708
  16. DOXYCYCLINE [Suspect]
     Active Substance: DOXYCYCLINE
     Indication: Breast cancer metastatic
     Dosage: 160 MILLIGRAM, MONTHLY
     Route: 042
     Dates: start: 20160718
  17. DOXYCYCLINE [Suspect]
     Active Substance: DOXYCYCLINE
     Dosage: 160 MILLIGRAM, MONTHLY
     Route: 042
     Dates: start: 20160808
  18. DOXYCYCLINE [Suspect]
     Active Substance: DOXYCYCLINE
     Dosage: 164 MILLIGRAM, MONTHLY
     Route: 042
     Dates: start: 20160830
  19. DOCETAXEL [Suspect]
     Active Substance: DOCETAXEL
     Indication: Breast cancer metastatic
     Dosage: 160 MILLIGRAM, MONTHLY
     Route: 042
     Dates: start: 20160718
  20. DOCETAXEL [Suspect]
     Active Substance: DOCETAXEL
     Dosage: 160 MILLIGRAM, MONTHLY
     Route: 042
     Dates: start: 20160808
  21. DOCETAXEL [Suspect]
     Active Substance: DOCETAXEL
     Dosage: 164 MILLIGRAM, MONTHLY
     Route: 042
     Dates: start: 20160830
  22. DOCETAXEL [Suspect]
     Active Substance: DOCETAXEL
     Dosage: 160 MILLIGRAM, MONTHLY
     Route: 042
     Dates: start: 20160718
  23. DOCETAXEL [Suspect]
     Active Substance: DOCETAXEL
     Dosage: 160 MILLIGRAM, MONTHLY
     Route: 042
     Dates: start: 20160708
  24. DOCETAXEL [Suspect]
     Active Substance: DOCETAXEL
     Dosage: 160 MILLIGRAM
     Route: 042
     Dates: start: 20160718, end: 20160830
  25. HERCEPTIN [Suspect]
     Active Substance: TRASTUZUMAB
     Indication: Product used for unknown indication
     Dosage: 798 MILLIGRAM, LOADING THEN 609MG
     Route: 042
     Dates: start: 20160718, end: 20160830
  26. HERCEPTIN [Suspect]
     Active Substance: TRASTUZUMAB
     Dosage: 609 MILLIGRAM, MONTHLY
     Route: 042
     Dates: start: 20160830, end: 20160830
  27. HERCEPTIN [Suspect]
     Active Substance: TRASTUZUMAB
     Dosage: 588 MILLIGRAM, MONTHLY
     Route: 042
     Dates: start: 20160808, end: 20160808
  28. HERCEPTIN [Suspect]
     Active Substance: TRASTUZUMAB
     Dosage: 798 MILLIGRAM, LOADING THEN 609MG
     Route: 042
     Dates: start: 20160718, end: 20160718
  29. HERCEPTIN [Suspect]
     Active Substance: TRASTUZUMAB
     Dosage: 420 MILLIGRAM
     Route: 042
     Dates: start: 20160808, end: 20160830
  30. NITROGLYCERIN [Concomitant]
     Active Substance: NITROGLYCERIN
     Indication: Product used for unknown indication
     Dosage: UNK
  31. DOXYCYCLINE [Concomitant]
     Active Substance: DOXYCYCLINE
     Indication: Product used for unknown indication
     Dosage: UNK
  32. MAGNESIUM SULFATE [Concomitant]
     Active Substance: MAGNESIUM SULFATE
     Indication: Product used for unknown indication
     Dosage: UNK
  33. PIPERACILLIN SODIUM\TAZOBACTAM SODIUM [Concomitant]
     Active Substance: PIPERACILLIN SODIUM\TAZOBACTAM SODIUM
     Indication: Neutropenic sepsis
     Dosage: UNK
     Route: 065
  34. BISOPROLOL [Concomitant]
     Active Substance: BISOPROLOL
     Indication: Acute kidney injury
     Dosage: UNK
  35. ACETAMINOPHEN [Concomitant]
     Active Substance: ACETAMINOPHEN
     Indication: Pain
     Dosage: 1 GRAM
     Route: 048
     Dates: start: 20160908
  36. BUTYLSCOPOLAMINE BROMIDE [Concomitant]
     Active Substance: BUTYLSCOPOLAMINE BROMIDE
     Indication: Colitis ischaemic
     Dosage: UNK
  37. MORPHINE SULFATE [Concomitant]
     Active Substance: MORPHINE SULFATE
     Indication: Product used for unknown indication
     Dosage: UNK
  38. LOPERAMIDE [Concomitant]
     Active Substance: LOPERAMIDE
     Indication: Diarrhoea
     Dosage: 2 MILLIGRAM, UP TO 4 TIMES A DAY IF NEEDED FOR LOOSE
     Route: 048
     Dates: start: 20161230
  39. METOCLOPRAMIDE [Concomitant]
     Active Substance: METOCLOPRAMIDE
     Indication: Colitis ischaemic
     Dosage: UNK
  40. FUROSEMIDE [Concomitant]
     Active Substance: FUROSEMIDE
     Indication: Acute kidney injury
     Dosage: UNK
  41. FLUCONAZOLE [Concomitant]
     Active Substance: FLUCONAZOLE
     Indication: Neutropenic sepsis
     Dosage: UNK
  42. CHLORHEXIDINE [Concomitant]
     Active Substance: CHLORHEXIDINE
     Indication: Colitis ischaemic
     Dosage: UNK
  43. SANDOCAL 1000 [Concomitant]
     Indication: Acute kidney injury
     Dosage: UNK
  44. ONDANSETRON [Concomitant]
     Active Substance: ONDANSETRON
     Indication: Nausea
     Dosage: 4 MILLIGRAM
     Route: 048
     Dates: start: 20160908
  45. CHLORHEXIDINE HYDROCHLORIDE\NEOMYCIN SULFATE [Concomitant]
     Active Substance: CHLORHEXIDINE HYDROCHLORIDE\NEOMYCIN SULFATE
     Indication: Colitis ischaemic
     Dosage: UNK
  46. DEXTROSE [Concomitant]
     Active Substance: DEXTROSE
     Indication: Product used for unknown indication
     Dosage: UNK
  47. GLUCOGEL [Concomitant]
     Dosage: UNK
  48. ZOPICLONE [Concomitant]
     Active Substance: ZOPICLONE
     Indication: Product used for unknown indication
     Dosage: UNK
  49. METRONIDAZOLE [Concomitant]
     Active Substance: METRONIDAZOLE
     Indication: Colitis ischaemic
     Dosage: UNK
  50. ALTEPLASE [Concomitant]
     Active Substance: ALTEPLASE
     Indication: Colitis ischaemic
     Dosage: UNK
     Route: 065
  51. MIDAZOLAM [Concomitant]
     Active Substance: MIDAZOLAM
     Indication: Colitis ischaemic
     Dosage: UNK
  52. POTASSIUM CHLORIDE [Concomitant]
     Active Substance: POTASSIUM CHLORIDE
     Indication: Product used for unknown indication
     Dosage: UNK
  53. POTASSIUM CHLORIDE [Concomitant]
     Active Substance: POTASSIUM CHLORIDE
     Dosage: UNK
     Route: 065
  54. CITALOPRAM [Concomitant]
     Active Substance: CITALOPRAM HYDROBROMIDE
     Indication: Depression
     Dosage: 20 MILLIGRAM, QD
     Route: 048
     Dates: start: 20160921
  55. TEICOPLANIN [Concomitant]
     Active Substance: TEICOPLANIN
     Indication: Colitis ischaemic
     Dosage: UNK
  56. METARAMINOL [Concomitant]
     Active Substance: METARAMINOL
     Indication: Colitis ischaemic
     Dosage: UNK
  57. EPOPROSTENOL [Concomitant]
     Active Substance: EPOPROSTENOL
     Indication: Acute kidney injury
     Dosage: UNK
  58. CIPROFLOXACIN [Concomitant]
     Active Substance: CIPROFLOXACIN
     Indication: Neutropenic sepsis
     Dosage: UNK
  59. FONDAPARINUX [Concomitant]
     Active Substance: FONDAPARINUX
     Indication: Colitis ischaemic
     Dosage: UNK
  60. DANAPAROID [Concomitant]
     Active Substance: DANAPAROID
     Indication: Product used for unknown indication
     Dosage: UNK
  61. MAGNASPARTATE [Concomitant]
     Indication: Blood magnesium decreased
     Dosage: 10 MILLIMOLE
     Route: 065
     Dates: start: 20160908
  62. MAGNASPARTATE [Concomitant]
     Dosage: UNK
  63. OXYCODONE HYDROCHLORIDE [Concomitant]
     Active Substance: OXYCODONE HYDROCHLORIDE
     Indication: Pain
     Dosage: UNK
  64. DALTEPARIN [Concomitant]
     Active Substance: DALTEPARIN
     Indication: Acute kidney injury
     Dosage: UNK
  65. ALFENTANIL [Concomitant]
     Active Substance: ALFENTANIL
     Indication: Product used for unknown indication
     Dosage: UNK
  66. CODEINE [Concomitant]
     Active Substance: CODEINE
     Indication: Product used for unknown indication
     Dosage: UNK
  67. NOREPINEPHRINE [Concomitant]
     Active Substance: NOREPINEPHRINE
     Indication: Product used for unknown indication
     Dosage: UNK
  68. DEXTROSE [Concomitant]
     Active Substance: DEXTROSE
     Indication: Neutropenic sepsis
     Dosage: UNK
     Route: 042
  69. HARTMANS [Concomitant]
     Dosage: UNK
  70. CLOPIDOGREL [Concomitant]
     Active Substance: CLOPIDOGREL BISULFATE
     Indication: Pneumonia
     Dosage: UNK
  71. BONJELA [Concomitant]
     Active Substance: CETALKONIUM CHLORIDE\CHOLINE SALICYLATE\MENTHOL
     Indication: Neutropenic sepsis
     Dosage: UNK
  72. POTASSIUM BICARBONATE\POTASSIUM CHLORIDE [Concomitant]
     Active Substance: POTASSIUM BICARBONATE\POTASSIUM CHLORIDE
     Indication: Acute kidney injury
     Dosage: UNK
  73. ERDOSTEINE [Concomitant]
     Active Substance: ERDOSTEINE
     Dosage: UNK
  74. ASPIRIN [Concomitant]
     Active Substance: ASPIRIN
     Indication: Colitis ischaemic
     Dosage: UNK
  75. FRAGMIN [Concomitant]
     Active Substance: DALTEPARIN SODIUM
     Indication: Vomiting
     Dosage: UNK
  76. HYDROCORTISONE [Concomitant]
     Active Substance: HYDROCORTISONE
     Indication: Neutropenic sepsis
     Dosage: UNK
  77. MEROPENEM [Concomitant]
     Active Substance: MEROPENEM
     Indication: Product used for unknown indication
     Dosage: UNK
  78. LEVOMEPROMAZINE [Concomitant]
     Active Substance: LEVOMEPROMAZINE
     Indication: Product used for unknown indication
     Dosage: UNK
  79. ERYTHROMYCIN [Concomitant]
     Active Substance: ERYTHROMYCIN
     Indication: Neutropenic sepsis
     Dosage: UNK
  80. LANSOPRAZOLE [Concomitant]
     Active Substance: LANSOPRAZOLE
     Indication: Colitis ischaemic
     Dosage: UNK
  81. LANSOPRAZOLE [Concomitant]
     Active Substance: LANSOPRAZOLE
     Dosage: 30 MILLIGRAM, DAILY
     Route: 048
     Dates: start: 20160908
  82. TRANEXAMIC ACID [Concomitant]
     Active Substance: TRANEXAMIC ACID
     Indication: Product used for unknown indication
     Dosage: UNK
  83. ALBUTEROL [Concomitant]
     Active Substance: ALBUTEROL
     Indication: Pneumonia
     Dosage: UNK
  84. MORPHINE [Concomitant]
     Active Substance: MORPHINE
     Indication: Product used for unknown indication
     Dosage: UNK
  85. RAMIPRIL [Concomitant]
     Active Substance: RAMIPRIL
     Indication: Acute kidney injury
     Dosage: UNK
  86. GENTAMICIN [Concomitant]
     Active Substance: GENTAMICIN
     Indication: Product used for unknown indication
     Dosage: UNK
     Route: 065
  87. PROPOFOL [Concomitant]
     Active Substance: PROPOFOL
     Indication: Colitis ischaemic
     Dosage: UNK
  88. TAUROLIDINE [Concomitant]
     Active Substance: TAUROLIDINE
     Dosage: UNK
  89. HEPARIN [Concomitant]
     Active Substance: HEPARIN SODIUM
     Indication: Acute kidney injury
     Dosage: UNK
  90. CYCLIZINE [Concomitant]
     Active Substance: CYCLIZINE
     Indication: Nausea
     Dosage: 50 MILLIGRAM, AS NEEDED
     Route: 048
     Dates: start: 20160908
  91. MORPHINE SULFATE [Concomitant]
     Active Substance: MORPHINE SULFATE
     Indication: Product used for unknown indication
     Dosage: UNK
  92. TOLTERODINE [Concomitant]
     Active Substance: TOLTERODINE
     Indication: Acute kidney injury
     Dosage: UNK
     Route: 065
  93. OMEPRAZOLE [Concomitant]
     Active Substance: OMEPRAZOLE
     Indication: Colitis ischaemic
     Dosage: UNK
  94. ARGATROBAN [Concomitant]
     Active Substance: ARGATROBAN
     Indication: Colitis ischaemic
     Dosage: UNK
  95. FILGRASTIM [Concomitant]
     Active Substance: FILGRASTIM
     Indication: Neutropenic sepsis
     Dosage: UNK
  96. DIHYDROCODEINE [Concomitant]
     Active Substance: DIHYDROCODEINE
     Indication: Pain
     Dosage: 30 MILLIGRAM
     Route: 048
     Dates: start: 20160908
  97. VASOPRESSIN [Concomitant]
     Active Substance: VASOPRESSIN
     Indication: Neutropenic sepsis
     Dosage: UNK
  98. CALCIUM GLUCONATE [Concomitant]
     Active Substance: CALCIUM GLUCONATE
     Indication: Colitis ischaemic
     Dosage: UNK
  99. DIAZEPAM [Concomitant]
     Active Substance: DIAZEPAM
     Indication: Colitis ischaemic
     Dosage: UNK
     Route: 048
  100. NOREPINEPHRINE [Concomitant]
     Active Substance: NOREPINEPHRINE
     Indication: Product used for unknown indication
     Dosage: UNK
  101. TINZAPARIN [Concomitant]
     Active Substance: TINZAPARIN
     Indication: Product used for unknown indication
     Dosage: UNK
     Route: 065
  102. TINZAPARIN [Concomitant]
     Active Substance: TINZAPARIN
     Dosage: UNK
     Route: 065
  103. FLUCLOXACILLIN [Concomitant]
     Active Substance: FLUCLOXACILLIN
     Indication: Product used for unknown indication
     Dosage: UNK
  104. CHLORPHENIRAMINE MALEATE [Concomitant]
     Active Substance: CHLORPHENIRAMINE MALEATE
     Indication: Neutropenic sepsis
     Dosage: UNK
  105. ERDOSTEINE [Concomitant]
     Active Substance: ERDOSTEINE
     Indication: Pneumonia
     Dosage: UNK
  106. CALCIUM CHLORIDE [Concomitant]
     Active Substance: CALCIUM CHLORIDE
     Indication: Product used for unknown indication
     Dosage: UNK
     Route: 065
  107. POTASSIUM BICARBONATE [Concomitant]
     Active Substance: POTASSIUM BICARBONATE
     Indication: Acute kidney injury
     Dosage: UNK
  108. SODIUM CITRATE [Concomitant]
     Active Substance: SODIUM CITRATE
     Indication: Product used for unknown indication
     Dosage: UNK
     Route: 065
  109. SODIUM LACTATE [Concomitant]
     Active Substance: SODIUM LACTATE
     Indication: Product used for unknown indication
     Dosage: UNK
     Route: 065
  110. TAUROLIDINE [Concomitant]
     Active Substance: TAUROLIDINE
     Indication: Product used for unknown indication
     Dosage: UNK
  111. TAUROLIDINE [Concomitant]
     Active Substance: TAUROLIDINE
     Dosage: UNK

REACTIONS (13)
  - Colitis [Recovering/Resolving]
  - Perforation [Recovering/Resolving]
  - Peritonitis [Recovered/Resolved]
  - Neutropenic sepsis [Recovered/Resolved]
  - Colitis ischaemic [Not Recovered/Not Resolved]
  - Vomiting [Recovered/Resolved with Sequelae]
  - Abdominal pain [Recovered/Resolved with Sequelae]
  - Rash [Recovered/Resolved]
  - Diarrhoea [Recovered/Resolved]
  - Pneumonia [Recovered/Resolved]
  - Acute kidney injury [Recovered/Resolved]
  - Off label use [Unknown]
  - Overdose [Unknown]

NARRATIVE: CASE EVENT DATE: 20160803
